FAERS Safety Report 9924884 (Version 1)
Quarter: 2014Q1

REPORT INFORMATION
  Report Type: Spontaneous
  Country: US (occurrence: None)
  Receive Date: 20140224
  Receipt Date: 20140224
  Transmission Date: 20141002
  Serious: Yes (Hospitalization)
  Sender: FDA-Public Use
  Company Number: None

PATIENT
  Age: 68 Year
  Sex: Male
  Weight: 115 kg

DRUGS (1)
  1. WARFARIN [Suspect]
     Indication: ATRIAL FIBRILLATION
     Dosage: MG PM PO
     Route: 048
     Dates: start: 20130503, end: 20140109

REACTIONS (5)
  - Confusional state [None]
  - Swelling [None]
  - Contusion [None]
  - Dysphagia [None]
  - Aphasia [None]
